FAERS Safety Report 9891982 (Version 1)
Quarter: 2014Q1

REPORT INFORMATION
  Report Type: Spontaneous
  Country: GB (occurrence: GB)
  Receive Date: 20140212
  Receipt Date: 20140212
  Transmission Date: 20141002
  Serious: Yes (Death, Other)
  Sender: FDA-Public Use
  Company Number: GB-JNJFOC-20140203193

PATIENT
  Sex: Male

DRUGS (1)
  1. DUROGESIC DTRANS [Suspect]
     Indication: DRUG ABUSE
     Route: 050

REACTIONS (5)
  - Death [Fatal]
  - Intentional drug misuse [Unknown]
  - Drug abuse [Unknown]
  - Drug diversion [Unknown]
  - Wrong technique in drug usage process [Unknown]
